FAERS Safety Report 17349335 (Version 2)
Quarter: 2020Q1

REPORT INFORMATION
  Report Type: Spontaneous
  Country: IT (occurrence: IT)
  Receive Date: 20200130
  Receipt Date: 20200312
  Transmission Date: 20200409
  Serious: Yes (Death, Hospitalization, Other)
  Sender: FDA-Public Use
  Company Number: IT-APOTEX-2020AP007088

PATIENT

DRUGS (1)
  1. SEREUPIN [Suspect]
     Active Substance: PAROXETINE HYDROCHLORIDE
     Indication: DEPRESSION
     Dosage: UNK
     Route: 065

REACTIONS (8)
  - Myocardial ischaemia [Unknown]
  - Blood luteinising hormone increased [Unknown]
  - Breast mass [Unknown]
  - Gynaecomastia [Unknown]
  - Acute myocardial infarction [Unknown]
  - Blood follicle stimulating hormone increased [Unknown]
  - Death [Fatal]
  - Blood prolactin increased [Unknown]

NARRATIVE: CASE EVENT DATE: 201910
